FAERS Safety Report 7514729-X (Version None)
Quarter: 2011Q2

REPORT INFORMATION
  Report Type: 
  Country: None (occurrence: None)
  Receive Date: 20110601
  Receipt Date: 20110420
  Transmission Date: 20111010
  Serious: Yes (Other)
  Sender: FDA-Public Use
  Company Number: US-BAYER-201024329NA

PATIENT
  Age: 23 Year
  Sex: Female
  Weight: 72.56 kg

DRUGS (11)
  1. ANTIBIOTICS [Concomitant]
     Dosage: UNK
     Dates: start: 20050101
  2. CYMBALTA [Concomitant]
     Indication: PAIN IN EXTREMITY
     Dosage: 60 MG, UNK
  3. LYRICA [Concomitant]
     Indication: PAIN IN EXTREMITY
     Dosage: 75 MG, UNK
  4. NEURONTIN [Concomitant]
     Indication: PAIN IN EXTREMITY
  5. YASMIN [Suspect]
     Indication: ACNE
     Dosage: UNK
     Route: 048
     Dates: start: 20080701, end: 20100301
  6. OMEPRAZOLE [Concomitant]
     Indication: GASTRIC PH DECREASED
  7. DROSPIRENONE AND ETHINYL ESTRADIOL [Suspect]
     Indication: ACNE
     Dosage: UNK
     Dates: start: 20080701, end: 20100301
  8. YASMIN [Suspect]
     Indication: PREMENSTRUAL SYNDROME
  9. ASCORBIC ACID [Concomitant]
  10. NSAID'S [Concomitant]
  11. DROSPIRENONE AND ETHINYL ESTRADIOL [Suspect]
     Indication: PREMENSTRUAL SYNDROME

REACTIONS (5)
  - CHOLECYSTITIS CHRONIC [None]
  - GALLBLADDER PAIN [None]
  - EMOTIONAL DISORDER [None]
  - GALLBLADDER DISORDER [None]
  - ABDOMINAL PAIN UPPER [None]
